FAERS Safety Report 6298440-1 (Version None)
Quarter: 2009Q3

REPORT INFORMATION
  Report Type: 
  Country: None (occurrence: None)
  Receive Date: 20090805
  Receipt Date: 20090727
  Transmission Date: 20100115
  Serious: Yes (Other)
  Sender: FDA-Public Use
  Company Number: US-TYCO HEALTHCARE/MALLINCKRODT-T200800994

PATIENT

DRUGS (23)
  1. OPTIMARK [Suspect]
     Indication: NUCLEAR MAGNETIC RESONANCE IMAGING
     Dosage: 15 ML, SINGLE
     Route: 042
     Dates: start: 20030311, end: 20030311
  2. MAGNEVIST [Suspect]
     Indication: SCAN
  3. OMNISCAN [Suspect]
     Indication: SCAN
  4. PROHANCE [Suspect]
     Indication: SCAN
  5. MULTIHANCE [Suspect]
     Indication: SCAN
  6. HYDROCODONE [Concomitant]
     Indication: PAIN
     Dosage: UNK, PRN
  7. NORVASC [Concomitant]
     Indication: HYPERTENSION
     Dosage: 5 MG, UNK
     Dates: start: 20030101
  8. SYNTHROID [Concomitant]
     Indication: HYPOTHYROIDISM
     Dosage: 50 UG, UNK
     Dates: start: 20020730
  9. PREMARIN [Concomitant]
     Indication: HORMONE REPLACEMENT THERAPY
     Dosage: 1.25 MG, UNK
     Dates: start: 20020730
  10. ALPRAZOLAM [Concomitant]
     Indication: ANXIETY
     Dosage: 2 MG, UNK
  11. AMARYL [Concomitant]
     Indication: DIABETES MELLITUS
     Dosage: 4 MG, UNK
     Dates: start: 20000101
  12. TRICOR [Concomitant]
     Indication: BLOOD CHOLESTEROL
     Dosage: 145 MG, 1 QHS
     Dates: start: 20030101
  13. BENICAR [Concomitant]
     Indication: HYPERTENSION
     Dates: start: 20070101
  14. NEXIUM [Concomitant]
     Indication: GASTROOESOPHAGEAL REFLUX DISEASE
     Dosage: UNK
     Dates: start: 20020730
  15. NITROGLYCERIN [Concomitant]
     Indication: CHEST PAIN
     Dosage: UNK
     Dates: start: 20040101
  16. VALIUM [Concomitant]
     Indication: MUSCLE SPASMS
     Dosage: UNK
     Dates: start: 20020730
  17. LASIX [Concomitant]
     Indication: FLUID RETENTION
     Dates: start: 20060101
  18. LORTAB [Concomitant]
     Indication: ANALGESIC INTERVENTION SUPPORTIVE THERAPY
     Dates: start: 20070101
  19. REFRESH                            /00007001/ [Concomitant]
  20. PREDNISONE [Concomitant]
     Dosage: 20 MG, UNK
  21. PROPOXYPHENE HCL AND ACETAMINOPHEN [Concomitant]
     Dosage: Q 6 HOURS
  22. DARVOCET                           /00220901/ [Concomitant]
  23. NORVASC [Concomitant]
     Dosage: 5 MG, BID
     Dates: start: 20020730

REACTIONS (9)
  - ANXIETY [None]
  - BACK PAIN [None]
  - COSTOCHONDRITIS [None]
  - FIBROMYALGIA [None]
  - HEADACHE [None]
  - NEPHROGENIC SYSTEMIC FIBROSIS [None]
  - PAIN [None]
  - PLANTAR FASCIITIS [None]
  - SYSTEMIC LUPUS ERYTHEMATOSUS [None]
